FAERS Safety Report 9529830 (Version 3)
Quarter: 2013Q4

REPORT INFORMATION
  Report Type: Spontaneous
  Country: US (occurrence: US)
  Receive Date: 20130917
  Receipt Date: 20131112
  Transmission Date: 20140711
  Serious: Yes (Other)
  Sender: FDA-Public Use
  Company Number: PHEH2006US015717

PATIENT
  Age: 64 Year
  Sex: Female
  Weight: 72.56 kg

DRUGS (20)
  1. AREDIA [Suspect]
     Indication: METASTASES TO BONE
     Dosage: 60 MG, QMO
     Route: 042
     Dates: start: 199811, end: 20021219
  2. AREDIA [Suspect]
     Dates: end: 2005
  3. ZOMETA [Suspect]
     Indication: METASTASES TO BONE
     Dosage: 4 MG, QMO
     Route: 042
     Dates: start: 20030115, end: 2005
  4. ZOMETA [Suspect]
     Dates: end: 200610
  5. OXYGEN THERAPY [Suspect]
  6. TAMOXIFEN [Concomitant]
     Indication: BREAST CANCER
  7. ARIMIDEX ^ASTRAZENECA^ [Concomitant]
     Indication: BREAST CANCER
  8. FEMARA [Concomitant]
     Indication: BREAST CANCER
     Dosage: 2.5 MG, QD
     Route: 048
     Dates: start: 199811
  9. PROZAC [Concomitant]
     Indication: DEPRESSION
     Dosage: 20 MG, QD
     Route: 048
  10. BELLAMINE S [Concomitant]
     Route: 048
  11. RESTORIL [Concomitant]
  12. HYDROXYZINE [Concomitant]
  13. ROBAXIN [Concomitant]
  14. MULTIVITAMINS [Concomitant]
  15. IMODIUM [Concomitant]
  16. SYNTHROID [Concomitant]
     Dosage: 10 MG, QD
     Route: 048
  17. LEVOTHROID [Concomitant]
     Dosage: 1 MG, QD
     Route: 048
  18. DIPHENOXYLATE W/ATROPINE SULFATE [Concomitant]
     Dosage: 1 DF, BID
     Route: 048
  19. CALCIUM [Concomitant]
     Dosage: 1500 MG, QD
     Route: 048
  20. GLUCOSAMINE HYDROCHLORIDE [Concomitant]
     Dosage: 500 MG
     Route: 048

REACTIONS (163)
  - Metastases to soft tissue [Unknown]
  - Osteonecrosis of jaw [Recovering/Resolving]
  - Injury [Unknown]
  - Pain [Not Recovered/Not Resolved]
  - Anxiety [Unknown]
  - X-ray abnormal [Unknown]
  - Tooth disorder [Unknown]
  - Abscess jaw [Unknown]
  - Bone erosion [Unknown]
  - Exposed bone in jaw [Unknown]
  - Oral disorder [Unknown]
  - Impaired healing [Unknown]
  - Depression [Not Recovered/Not Resolved]
  - Oral infection [Unknown]
  - Inflammation [Unknown]
  - Pain in jaw [Unknown]
  - Oral discomfort [Unknown]
  - Stomatitis [Unknown]
  - Cheilitis [Unknown]
  - Osteoarthritis [Unknown]
  - Rib fracture [Unknown]
  - Foot fracture [Unknown]
  - Exostosis [Unknown]
  - Intervertebral disc protrusion [Unknown]
  - Gastrointestinal haemorrhage [Unknown]
  - Cataract [Unknown]
  - Cardiac failure congestive [Unknown]
  - Appendicitis [Unknown]
  - Asthma [Unknown]
  - Mitral valve incompetence [Unknown]
  - Visual field defect [Unknown]
  - Upper respiratory tract infection [Unknown]
  - Sinusitis [Unknown]
  - Pallor [Unknown]
  - Conjunctival pallor [Unknown]
  - Hypothyroidism [Unknown]
  - Liver function test abnormal [Unknown]
  - Blood homocysteine increased [Unknown]
  - Fatigue [Unknown]
  - Asthenia [Unknown]
  - Cerebral ischaemia [Unknown]
  - Liver disorder [Unknown]
  - Haemorrhoids [Unknown]
  - Seasonal allergy [Unknown]
  - Cardiac murmur [Unknown]
  - Intervertebral disc space narrowing [Unknown]
  - Facet joint syndrome [Unknown]
  - Arthropathy [Unknown]
  - Ligament disorder [Unknown]
  - Cellulitis [Unknown]
  - Dyslipidaemia [Unknown]
  - Breast calcifications [Unknown]
  - Anaemia [Unknown]
  - Atrophic vulvovaginitis [Unknown]
  - Dyspareunia [Unknown]
  - Urinary incontinence [Unknown]
  - Hypercholesterolaemia [Unknown]
  - Gastric ulcer [Unknown]
  - Ischiorectal hernia [Unknown]
  - Vestibulitis [Unknown]
  - Pain in extremity [Not Recovered/Not Resolved]
  - Sacroiliitis [Unknown]
  - Lumbar spinal stenosis [Unknown]
  - Back pain [Not Recovered/Not Resolved]
  - Constipation [Unknown]
  - Haemangioma [Unknown]
  - Solar lentigo [Unknown]
  - Diarrhoea [Unknown]
  - Dyspnoea [Unknown]
  - Cough [Unknown]
  - Arthralgia [Unknown]
  - Headache [Unknown]
  - Hypertension [Unknown]
  - Diverticulum [Unknown]
  - Large intestine polyp [Unknown]
  - Oral neoplasm benign [Unknown]
  - Left atrial dilatation [Unknown]
  - Tricuspid valve incompetence [Unknown]
  - Synovial cyst [Unknown]
  - Osteoporosis [Unknown]
  - Plantar fascial fibromatosis [Unknown]
  - Drug hypersensitivity [Unknown]
  - Blepharitis [Unknown]
  - Irritable bowel syndrome [Unknown]
  - Varicose vein [Unknown]
  - Oedema peripheral [Unknown]
  - Foot deformity [Unknown]
  - Joint contracture [Unknown]
  - Periarthritis [Unknown]
  - Contusion [Unknown]
  - Bunion [Unknown]
  - Primary sequestrum [Unknown]
  - Chest discomfort [Unknown]
  - Blindness [Unknown]
  - Photophobia [Unknown]
  - Change of bowel habit [Unknown]
  - Libido decreased [Unknown]
  - Joint swelling [Unknown]
  - Musculoskeletal stiffness [Unknown]
  - Arthritis [Unknown]
  - Night sweats [Unknown]
  - Dry skin [Unknown]
  - Disturbance in attention [Unknown]
  - Coordination abnormal [Unknown]
  - Lymphadenopathy [Unknown]
  - Urticaria [Unknown]
  - Rash [Unknown]
  - Chest pain [Unknown]
  - Renal disorder [Unknown]
  - Wound [Unknown]
  - Pruritus [Unknown]
  - Hot flush [Unknown]
  - Mouth ulceration [Unknown]
  - Snoring [Unknown]
  - Neck mass [Unknown]
  - Palatal disorder [Unknown]
  - Neoplasm [Unknown]
  - Nasal septum deviation [Unknown]
  - Tooth erosion [Unknown]
  - Skin cancer [Unknown]
  - Second primary malignancy [Unknown]
  - Mass [Unknown]
  - Dermatitis contact [Unknown]
  - Dermatitis [Unknown]
  - Basal cell carcinoma [Unknown]
  - Gingival bleeding [Unknown]
  - Hypoaesthesia oral [Unknown]
  - Loose tooth [Unknown]
  - Oral discharge [Unknown]
  - Bone fragmentation [Unknown]
  - Osteomyelitis [Unknown]
  - Fluid overload [Unknown]
  - Osteopenia [Unknown]
  - Folliculitis [Unknown]
  - Vascular calcification [Unknown]
  - Joint effusion [Unknown]
  - Panic attack [Unknown]
  - Ejection fraction decreased [Unknown]
  - Fall [Unknown]
  - Facial bones fracture [Unknown]
  - Lip swelling [Unknown]
  - Eye swelling [Unknown]
  - Neck pain [Unknown]
  - Facial pain [Unknown]
  - Hyperlipidaemia [Unknown]
  - Papule [Unknown]
  - Angiofibroma [Unknown]
  - Ingrowing nail [Unknown]
  - Burning sensation [Unknown]
  - Dysplastic naevus [Unknown]
  - Neurodermatitis [Unknown]
  - Erythema [Unknown]
  - Ephelides [Unknown]
  - Flushing [Unknown]
  - Melanocytic naevus [Unknown]
  - Sunburn [Unknown]
  - Fibrous histiocytoma [Unknown]
  - Rosacea [Unknown]
  - Lip discolouration [Unknown]
  - Eye disorder [Unknown]
  - Dry eye [Unknown]
  - Cyst [Unknown]
  - Acne [Unknown]
